FAERS Safety Report 8612566 (Version 4)
Quarter: 2012Q4

REPORT INFORMATION
  Report Type: 
  Country: US (occurrence: US)
  Receive Date: 20120613
  Receipt Date: 20121018
  Transmission Date: 20130627
  Serious: Yes (Congenital Anomaly)
  Sender: FDA-Public Use
  Company Number: US-VIIV HEALTHCARE LIMITED-A0980669A

PATIENT

DRUGS (3)
  1. COMBIVIR [Suspect]
     Indication: HIV INFECTION
     Dosage: 2TAB per day
     Route: 064
     Dates: start: 20120105
  2. KALETRA [Suspect]
     Indication: HIV INFECTION
     Dosage: 4TAB per day
     Route: 064
     Dates: start: 20120105
  3. ZIDOVUDINE [Suspect]
     Indication: ANTIVIRAL TREATMENT
     Route: 064
     Dates: start: 20120816, end: 20120816

REACTIONS (2)
  - Single umbilical artery [Unknown]
  - Foetal exposure during pregnancy [Unknown]
